FAERS Safety Report 6773960-1 (Version None)
Quarter: 2010Q2

REPORT INFORMATION
  Report Type: 
  Country: None (occurrence: None)
  Receive Date: 20100617
  Receipt Date: 20100607
  Transmission Date: 20101027
  Serious: Yes (Hospitalization, Other)
  Sender: FDA-Public Use
  Company Number: RO-WYE-H06244808

PATIENT
  Age: 46 Year
  Sex: Male

DRUGS (1)
  1. VENLAFAXINE HCL [Suspect]
     Dosage: 7.5 G OVERDOSE AMOUNT
     Route: 048

REACTIONS (7)
  - BRADYPNOEA [None]
  - DRUG TOXICITY [None]
  - HYPOVENTILATION [None]
  - INTENTIONAL OVERDOSE [None]
  - RHABDOMYOLYSIS [None]
  - SEROTONIN SYNDROME [None]
  - SUICIDE ATTEMPT [None]
